FAERS Safety Report 8396583 (Version 9)
Quarter: 2015Q2

REPORT INFORMATION
  Report Type: Report from Study
  Country: CA (occurrence: CA)
  Receive Date: 20120208
  Receipt Date: 20150511
  Transmission Date: 20150821
  Serious: Yes (Other)
  Sender: FDA-Public Use
  Company Number: PHHY2012CA008357

PATIENT
  Age: 30 Year
  Sex: Female

DRUGS (3)
  1. GILENYA [Suspect]
     Active Substance: FINGOLIMOD HYDROCHLORIDE
     Dosage: 0.5 MG, DAILY
     Route: 048
     Dates: start: 20120423, end: 201312
  2. GILENYA [Suspect]
     Active Substance: FINGOLIMOD HYDROCHLORIDE
     Indication: RELAPSING-REMITTING MULTIPLE SCLEROSIS
     Dosage: 0.5 MG, DAILY
     Route: 048
     Dates: start: 20120126
  3. GILENYA [Suspect]
     Active Substance: FINGOLIMOD HYDROCHLORIDE
     Dosage: UNK
     Route: 048
     Dates: start: 20140416

REACTIONS (16)
  - Multiple sclerosis relapse [Recovered/Resolved]
  - Asthenia [Unknown]
  - Blood pressure decreased [Unknown]
  - Mobility decreased [Recovering/Resolving]
  - Somnolence [Unknown]
  - Headache [Unknown]
  - Dizziness [Recovered/Resolved]
  - Fatigue [Recovering/Resolving]
  - Pain [Unknown]
  - Cough [Unknown]
  - Back pain [Unknown]
  - Dry mouth [Unknown]
  - Paraesthesia [Unknown]
  - Dysgeusia [Unknown]
  - Balance disorder [Unknown]
  - Nasal congestion [Unknown]

NARRATIVE: CASE EVENT DATE: 20120127
